FAERS Safety Report 7397403-2 (Version None)
Quarter: 2011Q1

REPORT INFORMATION
  Report Type: 
  Country: None (occurrence: None)
  Receive Date: 20110328
  Receipt Date: 20110314
  Transmission Date: 20110831
  Serious: Yes (Other)
  Sender: FDA-Public Use
  Company Number: OSCN-PR-0906S-0309

PATIENT
  Sex: Female

DRUGS (1)
  1. OMNISCAN [Suspect]
     Indication: PRODUCT USED FOR UNKNOWN INDICATION
     Dosage: 5 ADMINS BETWEEN
     Dates: start: 20030626, end: 20060201

REACTIONS (1)
  - NEPHROGENIC SYSTEMIC FIBROSIS [None]
